FAERS Safety Report 4860177-0 (Version None)
Quarter: 2005Q4

REPORT INFORMATION
  Report Type: 
  Country: None (occurrence: None)
  Receive Date: 20051219
  Receipt Date: 20050413
  Transmission Date: 20060501
  Serious: Yes (Hospitalization)
  Sender: FDA-Public Use
  Company Number: US-ROCHE-401683

PATIENT
  Age: 45 Year
  Sex: Female
  Weight: 90.3 kg

DRUGS (29)
  1. CAPECITABINE [Suspect]
     Indication: BREAST CANCER
     Dosage: GIVEN ON DAYS 1 - 14 OF A 3 WEEK CYCLE.
     Route: 048
     Dates: start: 20050308
  2. CAPECITABINE [Suspect]
     Dosage: GIVEN FROM DAYS ONE TO FOURTEEN OF A THREE WEEK CYCLE.
     Route: 048
     Dates: start: 20050329, end: 20050401
  3. DOCETAXEL [Suspect]
     Indication: BREAST CANCER
     Dosage: GIVEN ON DAY 1 OF A 3 WEEK CYCLE.
     Route: 042
     Dates: start: 20050308
  4. DOXORUBICIN [Suspect]
     Indication: BREAST CANCER
     Dosage: ON DAY ONE OF EACH THREE WEEK CYCLE (FOR FOUR CYCLES)
     Route: 042
  5. CYCLOPHOSPHAMIDE [Suspect]
     Indication: BREAST CANCER
     Dosage: ON DAY ONE OF EACH THREE WEEK CYCLE (FOR FOUR CYCLES)
     Route: 042
  6. MICARDIS [Concomitant]
     Indication: HYPERTENSION
     Route: 048
     Dates: start: 20041015
  7. AMARYL [Concomitant]
     Route: 048
     Dates: start: 20041015
  8. AVANDIA [Concomitant]
  9. VICODIN [Concomitant]
  10. HEMOCYTE [Concomitant]
     Route: 048
     Dates: start: 20050125
  11. SYNTHROID [Concomitant]
     Route: 048
     Dates: start: 20041015
  12. IBUPROFEN [Concomitant]
     Indication: PAIN
     Route: 048
     Dates: start: 20040615, end: 20041115
  13. AVANDAMET [Concomitant]
     Route: 048
     Dates: start: 20041015
  14. TYLENOL [Concomitant]
     Indication: PAIN
     Dosage: TAKEN AS REQUIRED
     Route: 048
     Dates: start: 20041015
  15. EMEND [Concomitant]
     Indication: NAUSEA
     Dosage: TAKEN AS REQUIRED
     Route: 048
     Dates: start: 20050104
  16. ATIVAN [Concomitant]
     Indication: ANXIETY
     Route: 048
     Dates: start: 20050125
  17. LEVAQUIN [Concomitant]
     Route: 048
     Dates: start: 20050110, end: 20050115
  18. COMPAZINE [Concomitant]
     Indication: NAUSEA
     Route: 048
     Dates: start: 20050104
  19. PHENERGAN [Concomitant]
     Indication: NAUSEA
  20. IMODIUM [Concomitant]
     Indication: DIARRHOEA
     Route: 048
     Dates: start: 20050115, end: 20050410
  21. ARANESP [Concomitant]
     Dosage: TOTAL DAILY DOSE: 300 (NO UNITS SPECIFIED)
     Route: 058
     Dates: start: 20041214
  22. ADVIL [Concomitant]
     Indication: PAIN
     Route: 048
     Dates: start: 20041111
  23. COUMADIN [Concomitant]
     Indication: PROPHYLAXIS
     Route: 048
  24. AMITRIPTYLINE [Concomitant]
     Route: 048
     Dates: start: 20050407
  25. AMBIEN [Concomitant]
     Indication: INSOMNIA
     Route: 048
     Dates: start: 20050315
  26. DARVOCET [Concomitant]
     Indication: PAIN
     Dosage: DOSE FREQUENCY REPORTED AS '100' PRN
     Route: 048
     Dates: start: 20050315
  27. NEULASTA [Concomitant]
     Dosage: DOSE REPORTED AS '6' PRN
     Route: 058
     Dates: start: 20050315
  28. HYDROCODONE [Concomitant]
     Indication: PAIN
     Dosage: DOSE REPORTED AS 5/500MG PRN
     Route: 048
     Dates: start: 20050411
  29. BACTRIM DS [Concomitant]
     Route: 048
     Dates: start: 20050426, end: 20050503

REACTIONS (8)
  - DIABETES MELLITUS [None]
  - DIARRHOEA [None]
  - JOINT SWELLING [None]
  - MYOSITIS [None]
  - RASH [None]
  - SINUS TACHYCARDIA [None]
  - SPINAL OSTEOARTHRITIS [None]
  - UTERINE LEIOMYOMA [None]
